FAERS Safety Report 6245253-2 (Version None)
Quarter: 2009Q2

REPORT INFORMATION
  Report Type: 
  Country: None (occurrence: None)
  Receive Date: 20090619
  Receipt Date: 20090416
  Transmission Date: 20091009
  Serious: No
  Sender: FDA-Public Use
  Company Number: ALL1-2009-01003

PATIENT
  Age: 15 Year
  Sex: Male
  Weight: 56.7 kg

DRUGS (3)
  1. VYVANSE [Suspect]
     Indication: ATTENTION DEFICIT/HYPERACTIVITY DISORDER
     Dosage: 30 MG, 1X/DAY; QD, ORAL; 40 MG, 1X/DAY;QD, ORAL
     Route: 048
     Dates: start: 20080101, end: 20090401
  2. VYVANSE [Suspect]
     Indication: ATTENTION DEFICIT/HYPERACTIVITY DISORDER
     Dosage: 30 MG, 1X/DAY; QD, ORAL; 40 MG, 1X/DAY;QD, ORAL
     Route: 048
     Dates: start: 20090401
  3. SERTRALINE [Suspect]
     Indication: DRUG USE FOR UNKNOWN INDICATION
     Dosage: 25 MG, 1X/DAY; QD, ORAL
     Route: 048
     Dates: start: 20090401

REACTIONS (2)
  - DYSTONIA [None]
  - OFF LABEL USE [None]
